FAERS Safety Report 6331813-7 (Version None)
Quarter: 2009Q3

REPORT INFORMATION
  Report Type: 
  Country: None (occurrence: None)
  Receive Date: 20090826
  Receipt Date: 20090814
  Transmission Date: 20100115
  Serious: Yes (Life-Threatening)
  Sender: FDA-Public Use
  Company Number: ADR16632009

PATIENT
  Age: 46 Year
  Sex: Male

DRUGS (6)
  1. ALENDRONIC ACID (MFR: UNKNOWN) [Suspect]
     Indication: PROPHYLAXIS
     Dosage: 70MG ORAL
     Route: 048
     Dates: start: 20080720, end: 20080801
  2. ADCAL-D3 [Concomitant]
  3. DF118 [Concomitant]
  4. OMEPRAZOLE [Concomitant]
  5. PARACETAMOL [Concomitant]
  6. PYRIDOSTIGMINE BROMIDE [Concomitant]

REACTIONS (2)
  - GENERAL PHYSICAL HEALTH DETERIORATION [None]
  - THROAT TIGHTNESS [None]
